FAERS Safety Report 6902543-5 (Version None)
Quarter: 2010Q3

REPORT INFORMATION
  Report Type: 
  Country: None (occurrence: None)
  Receive Date: 20100730
  Receipt Date: 20100715
  Transmission Date: 20110219
  Serious: Yes (Other)
  Sender: FDA-Public Use
  Company Number: 2010AC000477

PATIENT
  Sex: Male

DRUGS (1)
  1. DIGOXIN [Suspect]
     Dates: start: 20030203

REACTIONS (5)
  - DIZZINESS [None]
  - ECONOMIC PROBLEM [None]
  - FATIGUE [None]
  - NAUSEA [None]
  - THERAPEUTIC AGENT TOXICITY [None]
